FAERS Safety Report 4268575-3 (Version None)
Quarter: 2004Q1

REPORT INFORMATION
  Report Type: 
  Country: None (occurrence: None)
  Receive Date: 20040112
  Receipt Date: 20040102
  Transmission Date: 20041129
  Serious: Yes (Other)
  Sender: FDA-Public Use
  Company Number: PHBS2004CA00543

PATIENT
  Age: 63 Year
  Sex: Male

DRUGS (3)
  1. GLEEVEC [Suspect]
     Indication: GASTROINTESTINAL STROMAL TUMOUR
     Dosage: 500 MG/D
     Route: 048
     Dates: start: 20030201
  2. OMEPRAZOLE [Concomitant]
     Dates: start: 20020101
  3. PROCRIT [Concomitant]
     Dates: start: 20030701, end: 20031101

REACTIONS (1)
  - HALLUCINATION [None]
